FAERS Safety Report 22304957 (Version 1)
Quarter: 2023Q2

REPORT INFORMATION
  Report Type: Spontaneous
  Country: BA (occurrence: BA)
  Receive Date: 20230510
  Receipt Date: 20230510
  Transmission Date: 20230721
  Serious: Yes (Other)
  Sender: FDA-Public Use
  Company Number: BA-009507513-2305BIH001676

PATIENT
  Age: 55 Year
  Sex: Male

DRUGS (1)
  1. KEYTRUDA [Suspect]
     Active Substance: PEMBROLIZUMAB
     Indication: Non-small cell lung cancer
     Dosage: 200 MILLIGRAM, Q3W (21 DAYS)
     Dates: start: 2020

REACTIONS (14)
  - Leukoencephalopathy [Unknown]
  - Cerebral atrophy [Unknown]
  - Autoimmune thyroiditis [Unknown]
  - Malignant neoplasm progression [Unknown]
  - Hyperplasia adrenal [Unknown]
  - Pruritus [Unknown]
  - Prostatomegaly [Unknown]
  - Chronic obstructive pulmonary disease [Unknown]
  - Pancreatic steatosis [Unknown]
  - Hepatomegaly [Unknown]
  - Scar [Unknown]
  - Hepatic steatosis [Unknown]
  - Weight decreased [Unknown]
  - Calculus prostatic [Unknown]

NARRATIVE: CASE EVENT DATE: 20200601
